FAERS Safety Report 25099191 (Version 1)
Quarter: 2025Q1

REPORT INFORMATION
  Report Type: Spontaneous
  Country: ES (occurrence: ES)
  Receive Date: 20250320
  Receipt Date: 20250320
  Transmission Date: 20250409
  Serious: Yes (Other)
  Sender: TEVA
  Company Number: None

PATIENT
  Age: 46 Year
  Sex: Female

DRUGS (7)
  1. PEMETREXED [Suspect]
     Active Substance: PEMETREXED
     Indication: Lung adenocarcinoma stage IV
     Dosage: PEMETREXED (2944A)
     Route: 042
     Dates: start: 20240913, end: 20241230
  2. ACETAMINOPHEN [Concomitant]
     Active Substance: ACETAMINOPHEN
     Indication: Product used for unknown indication
     Dosage: EFG TABLETS, 40 TABLETS
     Route: 048
     Dates: start: 20240226
  3. TAGRISSO [Suspect]
     Active Substance: OSIMERTINIB
     Indication: Lung adenocarcinoma stage IV
     Dosage: 30 FILM-COATED TABLETS
     Route: 048
     Dates: start: 20240309
  4. ENOXAPARIN SODIUM [Concomitant]
     Active Substance: ENOXAPARIN SODIUM
     Indication: Product used for unknown indication
     Dosage: (80 MG)/0.8 ML, 30 PRE-FILLED SYRINGES OF 0.8 ML
     Route: 058
  5. OMEPRAZOLE CINFAMED [Concomitant]
     Indication: Product used for unknown indication
     Dosage: HARD GASTRORESISTANT CAPSULES EFG, 56 CAPSULES
     Route: 048
     Dates: start: 20240226
  6. CYANOCOBALAMIN [Concomitant]
     Active Substance: CYANOCOBALAMIN
     Indication: Product used for unknown indication
     Dosage: 1,000 MICROGRAMS INJECTABLE SOLUTION, 5 AMPOULES OF 2 ML
     Route: 042
     Dates: start: 20240909
  7. ZOLICO [Concomitant]
     Indication: Product used for unknown indication
     Dosage: ZOLICO 400 MICROGRAMS  28 TABLETS
     Route: 048
     Dates: start: 20240909

REACTIONS (3)
  - Hypertransaminasaemia [Recovered/Resolved]
  - Alanine aminotransferase abnormal [Recovered/Resolved]
  - Aspartate aminotransferase increased [Recovered/Resolved]

NARRATIVE: CASE EVENT DATE: 20250121
